FAERS Safety Report 20063854 (Version 1)
Quarter: 2021Q4

REPORT INFORMATION
  Report Type: Spontaneous
  Country: US (occurrence: None)
  Receive Date: 20211112
  Receipt Date: 20211112
  Transmission Date: 20220303
  Serious: Yes (Disabling)
  Sender: FDA-Public Use
  Company Number: None

PATIENT
  Age: 49 Year
  Sex: Female
  Weight: 74.25 kg

DRUGS (1)
  1. RISEDRONATE SODIUM [Suspect]
     Active Substance: RISEDRONATE SODIUM
     Indication: Osteoporosis
     Dosage: OTHER QUANTITY : 1 TABLET(S);?OTHER FREQUENCY : ONCE PER MONTH;?
     Route: 048
     Dates: start: 20211107, end: 20211107

REACTIONS (17)
  - Back pain [None]
  - Arthralgia [None]
  - Neck pain [None]
  - Chest pain [None]
  - Abdominal pain [None]
  - Abdominal pain upper [None]
  - Diarrhoea [None]
  - Arthralgia [None]
  - Pain in extremity [None]
  - Pain in jaw [None]
  - Headache [None]
  - Chills [None]
  - Decreased appetite [None]
  - Nausea [None]
  - Malaise [None]
  - Depressed mood [None]
  - Loss of personal independence in daily activities [None]

NARRATIVE: CASE EVENT DATE: 20211108
